FAERS Safety Report 10409688 (Version 1)
Quarter: 2014Q2

REPORT INFORMATION
  Report Type: Spontaneous
  Country: US (occurrence: None)
  Receive Date: 20140604
  Receipt Date: 20140604
  Transmission Date: 20141212
  Serious: No
  Sender: FDA-Public Use
  Company Number: 163-POMAL-14045394

PATIENT
  Age: 72 Year
  Sex: Female

DRUGS (7)
  1. POMALYST (POMALIDOMIDE) (4 MILLIGRAM, CAPSULES) [Suspect]
     Indication: PLASMA CELL MYELOMA
     Dosage: 4 MG, 21 IN 21 D
     Route: 048
     Dates: start: 20140227, end: 2014
  2. DEXAMETHASONE [Concomitant]
  3. AMOXICILLIN [Concomitant]
  4. TOPROL (METOPROLOL SUCCINAATE) [Concomitant]
  5. ASPIRINE (ACETYLSALICYLIC ACID) [Concomitant]
  6. VITAMIN D (ERGOCALCIFEROL) [Concomitant]
  7. VELCADE (BORTEZOMIB) [Concomitant]

REACTIONS (1)
  - Vision blurred [None]
